FAERS Safety Report 14826521 (Version 2)
Quarter: 2019Q1

REPORT INFORMATION
  Report Type: Report from Study
  Country: PA (occurrence: PA)
  Receive Date: 20180430
  Receipt Date: 20190326
  Transmission Date: 20190417
  Serious: Yes (Hospitalization, Other)
  Sender: FDA-Public Use
  Company Number: PHHY2018PA011765

PATIENT
  Sex: Male
  Weight: 49.8 kg

DRUGS (1)
  1. AFINITOR [Suspect]
     Active Substance: EVEROLIMUS
     Indication: HEPATIC CANCER
     Dosage: 1 DF, QD
     Route: 065
     Dates: start: 20171212, end: 20171224

REACTIONS (15)
  - Diarrhoea [Unknown]
  - Eating disorder [Unknown]
  - Drug ineffective for unapproved indication [Unknown]
  - Liver disorder [Unknown]
  - Product use in unapproved indication [Unknown]
  - Abdominal distension [Unknown]
  - Asthenia [Unknown]
  - Hepatomegaly [Unknown]
  - Malaise [Unknown]
  - Back pain [Unknown]
  - Headache [Unknown]
  - Nausea [Unknown]
  - Urinary tract disorder [Unknown]
  - Vomiting [Unknown]
  - Neoplasm progression [Unknown]
